FAERS Safety Report 8505878-8 (Version None)
Quarter: 2012Q3

REPORT INFORMATION
  Report Type: 
  Country: None (occurrence: None)
  Receive Date: 20120712
  Receipt Date: 20120702
  Transmission Date: 20120928
  Serious: Yes (Hospitalization)
  Sender: FDA-Public Use
  Company Number: US-ACTELION-A-NJ2012-68327

PATIENT

DRUGS (4)
  1. COUMADIN [Concomitant]
  2. EPOPROSTENOL SODIUM [Suspect]
     Indication: PULMONARY ARTERIAL HYPERTENSION
     Dosage: 24 NG/KG, PER MIN
     Route: 041
     Dates: start: 20100810
  3. RADIOACTIVE IODINE 131 SOLUTION [Suspect]
  4. SILDENAFIL [Concomitant]

REACTIONS (3)
  - WHEEZING [None]
  - HYPERTHYROIDISM [None]
  - PALPITATIONS [None]
